FAERS Safety Report 7343679-7 (Version None)
Quarter: 2011Q1

REPORT INFORMATION
  Report Type: 
  Country: None (occurrence: None)
  Receive Date: 20110310
  Receipt Date: 20101006
  Transmission Date: 20110831
  Serious: No
  Sender: FDA-Public Use
  Company Number: A0885178A

PATIENT
  Age: 43 Year
  Sex: Male

DRUGS (1)
  1. NICORETTE [Suspect]
     Dosage: 4MG SINGLE DOSE
     Dates: start: 20100901, end: 20100901

REACTIONS (1)
  - RETCHING [None]
